FAERS Safety Report 14070288 (Version 4)
Quarter: 2018Q4

REPORT INFORMATION
  Report Type: Spontaneous
  Country: FR (occurrence: FR)
  Receive Date: 20171010
  Receipt Date: 20181022
  Transmission Date: 20190204
  Serious: Yes (Other)
  Sender: FDA-Public Use
  Company Number: FR-MERCK KGAA-2029475

PATIENT
  Age: 53 Year
  Sex: Female

DRUGS (1)
  1. EUTHYROX [Suspect]
     Active Substance: LEVOTHYROXINE SODIUM
     Indication: THYROIDECTOMY
     Route: 048
     Dates: start: 20170617, end: 201708

REACTIONS (20)
  - Vertigo [Not Recovered/Not Resolved]
  - Balance disorder [Not Recovered/Not Resolved]
  - Insomnia [None]
  - Nervousness [None]
  - Sleep disorder [None]
  - Sexual inhibition [None]
  - Anxiety [None]
  - Social avoidant behaviour [None]
  - Migraine [Not Recovered/Not Resolved]
  - Fatigue [Not Recovered/Not Resolved]
  - Feeling abnormal [None]
  - Asthenia [None]
  - Mood altered [None]
  - Disturbance in attention [None]
  - Fear [None]
  - Blood thyroid stimulating hormone decreased [Unknown]
  - Nausea [None]
  - Gait disturbance [None]
  - Headache [None]
  - Pallor [None]

NARRATIVE: CASE EVENT DATE: 2017
